FAERS Safety Report 8118753-8 (Version None)
Quarter: 2012Q1

REPORT INFORMATION
  Report Type: 
  Country: None (occurrence: None)
  Receive Date: 20120207
  Receipt Date: 20120202
  Transmission Date: 20120608
  Serious: Yes (Life-Threatening)
  Sender: FDA-Public Use
  Company Number: IT-TEVA-321229ISR

PATIENT
  Sex: Female

DRUGS (5)
  1. PACLITAXEL [Suspect]
     Indication: BREAST CANCER
     Route: 042
     Dates: start: 20120127, end: 20120127
  2. DEXAMETHASONE SODIUM PHOSPHATE [Concomitant]
  3. ZANTAC [Concomitant]
  4. TRIMETON [Concomitant]
  5. NAVOBAN [Concomitant]

REACTIONS (5)
  - LOSS OF CONSCIOUSNESS [None]
  - RASH [None]
  - NAUSEA [None]
  - HYPERTENSION [None]
  - ASPHYXIA [None]
